FAERS Safety Report 23113666 (Version 1)
Quarter: 2023Q4

REPORT INFORMATION
  Report Type: Spontaneous
  Country: US (occurrence: US)
  Receive Date: 20231027
  Receipt Date: 20231027
  Transmission Date: 20240109
  Serious: Yes (Other)
  Sender: FDA-Public Use
  Company Number: US-BEH-2023164719

PATIENT
  Age: 21 Year
  Sex: Male

DRUGS (8)
  1. IDELVION [Suspect]
     Active Substance: COAGULATION FACTOR IX RECOMBINANT HUMAN
     Indication: Factor IX deficiency
     Dosage: 4500 INTERNATIONAL UNIT, QOW
     Route: 042
     Dates: start: 202303
  2. IDELVION [Suspect]
     Active Substance: COAGULATION FACTOR IX RECOMBINANT HUMAN
     Indication: Factor IX deficiency
     Dosage: 4500 INTERNATIONAL UNIT, QOW
     Route: 042
     Dates: start: 202303
  3. IDELVION [Suspect]
     Active Substance: COAGULATION FACTOR IX RECOMBINANT HUMAN
     Indication: Prophylaxis
  4. IDELVION [Suspect]
     Active Substance: COAGULATION FACTOR IX RECOMBINANT HUMAN
     Indication: Prophylaxis
  5. IDELVION [Suspect]
     Active Substance: COAGULATION FACTOR IX RECOMBINANT HUMAN
     Indication: Factor IX deficiency
     Dosage: 4500 INTERNATIONAL UNIT, QOW
     Route: 042
     Dates: start: 202303
  6. IDELVION [Suspect]
     Active Substance: COAGULATION FACTOR IX RECOMBINANT HUMAN
     Indication: Factor IX deficiency
     Dosage: 4500 INTERNATIONAL UNIT, QOW
     Route: 042
     Dates: start: 202303
  7. IDELVION [Suspect]
     Active Substance: COAGULATION FACTOR IX RECOMBINANT HUMAN
     Indication: Prophylaxis
  8. IDELVION [Suspect]
     Active Substance: COAGULATION FACTOR IX RECOMBINANT HUMAN
     Indication: Prophylaxis

REACTIONS (1)
  - Haemorrhage urinary tract [Recovered/Resolved]

NARRATIVE: CASE EVENT DATE: 20231014
